FAERS Safety Report 10061001 (Version 1)
Quarter: 2014Q2

REPORT INFORMATION
  Report Type: Spontaneous
  Country: GB (occurrence: GB)
  Receive Date: 20140405
  Receipt Date: 20140405
  Transmission Date: 20141212
  Serious: Yes (Other)
  Sender: FDA-Public Use
  Company Number: 2014SP001613

PATIENT
  Age: 52 Year
  Sex: Female
  Weight: 61.2 kg

DRUGS (8)
  1. OXALIPLATIN [Suspect]
     Indication: NEOPLASM MALIGNANT
     Route: 042
     Dates: start: 20140304, end: 20140304
  2. DEXAMETHASONE [Concomitant]
     Route: 065
     Dates: start: 20140204
  3. EPIRUBICIN [Concomitant]
     Route: 065
     Dates: start: 20140204
  4. GRANISETRON [Concomitant]
     Route: 065
     Dates: start: 20140204
  5. LEVOMEPROMAZINE HYDROCHLORIDE [Concomitant]
     Route: 065
     Dates: start: 20140204
  6. LEVOMEPROMAZINE MALEATE [Concomitant]
     Route: 065
     Dates: start: 20140204
  7. METHOTRIMEPRAZINE HYDROCHLORIDE [Concomitant]
  8. METHOTRIMEPRAZINE MALEATE [Concomitant]

REACTIONS (4)
  - Hypoaesthesia [Recovered/Resolved]
  - Swollen tongue [Recovered/Resolved]
  - Paraesthesia [Recovered/Resolved]
  - Aphasia [Recovered/Resolved]
